FAERS Safety Report 11265698 (Version 1)
Quarter: 2015Q3

REPORT INFORMATION
  Report Type: Spontaneous
  Country: IN (occurrence: IN)
  Receive Date: 20150713
  Receipt Date: 20150713
  Transmission Date: 20151125
  Serious: Yes (Hospitalization)
  Sender: FDA-Public Use
  Company Number: IN-PFIZER INC-2015228841

PATIENT
  Age: 38 Year
  Sex: Male

DRUGS (3)
  1. PHENYTOIN. [Suspect]
     Active Substance: PHENYTOIN
     Dosage: 600 MG/DAY
  2. PHENYTOIN. [Suspect]
     Active Substance: PHENYTOIN
     Indication: GENERALISED TONIC-CLONIC SEIZURE
     Dosage: 300 MG/DAY
  3. METHYLPREDNISOLONE. [Concomitant]
     Active Substance: METHYLPREDNISOLONE
     Indication: ENCEPHALITIS
     Dosage: UNK

REACTIONS (7)
  - Accidental overdose [Unknown]
  - Cerebellar ataxia [Not Recovered/Not Resolved]
  - Encephalopathy [Recovered/Resolved with Sequelae]
  - Toxicity to various agents [Unknown]
  - Electroencephalogram abnormal [Recovered/Resolved]
  - Cerebellar atrophy [Not Recovered/Not Resolved]
  - Drug ineffective [Unknown]
